FAERS Safety Report 17052487 (Version 2)
Quarter: 2020Q1

REPORT INFORMATION
  Report Type: Spontaneous
  Country: CA (occurrence: CA)
  Receive Date: 20191120
  Receipt Date: 20200102
  Transmission Date: 20200409
  Serious: Yes (Hospitalization, Other)
  Sender: FDA-Public Use
  Company Number: CA-PFIZER INC-2019470268

PATIENT
  Age: 47 Year
  Sex: Female

DRUGS (8)
  1. METONIA [Concomitant]
     Active Substance: METOCLOPRAMIDE
     Dosage: 5 MG, AS NEEDED
  2. TELMISARTAN. [Concomitant]
     Active Substance: TELMISARTAN
     Dosage: 40 MG, DAILY
  3. TYLENOL [Concomitant]
     Active Substance: ACETAMINOPHEN
     Dosage: UNK, AS NEEDED
  4. CALCIUM [Concomitant]
     Active Substance: CALCIUM
     Dosage: 1000 MG, UNK
  5. IBRANCE [Suspect]
     Active Substance: PALBOCICLIB
     Dosage: 125 MG, CYCLIC (1 CAPSULE ONCE DAILY FOR 21 DAYS IN A ROW, STOP FOR 7 DAYS)
     Route: 048
     Dates: start: 20190924, end: 2019
  6. LETROZOLE. [Concomitant]
     Active Substance: LETROZOLE
     Dosage: 2.5 MG, DAILY
  7. VITAMIN D NOS [Concomitant]
     Active Substance: VITAMIN D NOS
     Dosage: 1000 IU, UNK
  8. ADVIL [IBUPROFEN] [Concomitant]
     Active Substance: IBUPROFEN
     Dosage: UNK, AS NEEDED

REACTIONS (2)
  - Neoplasm progression [Unknown]
  - Pneumothorax [Unknown]

NARRATIVE: CASE EVENT DATE: 2019
